FAERS Safety Report 20113437 (Version 3)
Quarter: 2022Q1

REPORT INFORMATION
  Report Type: Report from Study
  Country: US (occurrence: US)
  Receive Date: 20211125
  Receipt Date: 20220316
  Transmission Date: 20220423
  Serious: No
  Sender: FDA-Public Use
  Company Number: US-GLAXOSMITHKLINE-US2021AMR229888

PATIENT
  Age: 55 Year
  Sex: Female

DRUGS (1)
  1. BELANTAMAB MAFODOTIN [Suspect]
     Active Substance: BELANTAMAB MAFODOTIN
     Indication: Plasma cell myeloma
     Dosage: 2.5 MG/KG, Z (Q21D)
     Dates: start: 20210927

REACTIONS (9)
  - Keratopathy [Unknown]
  - Visual acuity reduced [Not Recovered/Not Resolved]
  - Corneal abrasion [Unknown]
  - Night blindness [Not Recovered/Not Resolved]
  - Photophobia [Not Recovered/Not Resolved]
  - Dry eye [Not Recovered/Not Resolved]
  - Foreign body sensation in eyes [Not Recovered/Not Resolved]
  - Corneal defect [Unknown]
  - Corneal epithelial microcysts [Unknown]

NARRATIVE: CASE EVENT DATE: 20211101
